FAERS Safety Report 25202801 (Version 1)
Quarter: 2025Q2

REPORT INFORMATION
  Report Type: Spontaneous
  Country: US (occurrence: US)
  Receive Date: 20250416
  Receipt Date: 20250416
  Transmission Date: 20250717
  Serious: No
  Sender: GALPHARM INTERNATIONAL
  Company Number: US-PERRIGO-24US009218

PATIENT
  Age: 75 Year
  Sex: Female
  Weight: 77.098 kg

DRUGS (8)
  1. MICONAZOLE 3 COMBINATION PACK [Suspect]
     Active Substance: MICONAZOLE NITRATE
     Indication: Vulvovaginal mycotic infection
     Dosage: 200 MG, QHS
     Route: 067
     Dates: start: 20240924, end: 20240926
  2. MICONAZOLE 3 COMBINATION PACK [Suspect]
     Active Substance: MICONAZOLE NITRATE
     Indication: Vulvovaginal pruritus
  3. MICONAZOLE 3 COMBINATION PACK [Suspect]
     Active Substance: MICONAZOLE NITRATE
     Indication: Pruritus
     Route: 061
     Dates: start: 20240924
  4. FLUCONAZOLE [Concomitant]
     Active Substance: FLUCONAZOLE
     Indication: Vulvovaginal mycotic infection
     Route: 065
     Dates: start: 20240924, end: 20240927
  5. GEMTESA [Concomitant]
     Active Substance: VIBEGRON
     Indication: Urinary incontinence
     Route: 065
     Dates: start: 20240816
  6. CYCLOBENZAPRINE [Concomitant]
     Active Substance: CYCLOBENZAPRINE
     Indication: Muscle relaxant therapy
     Route: 065
     Dates: start: 202405
  7. EZETIMIBE [Concomitant]
     Active Substance: EZETIMIBE
     Indication: Blood cholesterol increased
     Route: 065
  8. EZETIMIBE [Concomitant]
     Active Substance: EZETIMIBE
     Indication: Blood cholesterol increased

REACTIONS (2)
  - Vulvovaginal burning sensation [Recovering/Resolving]
  - Vulvovaginal pruritus [Recovering/Resolving]

NARRATIVE: CASE EVENT DATE: 20240924
